FAERS Safety Report 25005161 (Version 2)
Quarter: 2025Q1

REPORT INFORMATION
  Report Type: Other
  Country: US (occurrence: US)
  Receive Date: 20250224
  Receipt Date: 20250306
  Transmission Date: 20250409
  Serious: Yes (Death, Other)
  Sender: MADRIGAL PHARMACEUTICALS
  Company Number: US-MADRIGAL PHARMACEUTICALS, INC-2025REZ1489

PATIENT

DRUGS (6)
  1. REZDIFFRA [Suspect]
     Active Substance: RESMETIROM
     Indication: Metabolic dysfunction-associated steatohepatitis
     Dosage: 100 MILLIGRAM, QD
     Route: 048
     Dates: start: 202411
  2. PROTONIX [Concomitant]
     Active Substance: PANTOPRAZOLE SODIUM
  3. OZEMPIC [Concomitant]
     Active Substance: SEMAGLUTIDE
  4. CHLORTHALIDONE [Concomitant]
     Active Substance: CHLORTHALIDONE
  5. ENALAPRIL MALEATE AND HYDROCHLOROTHIAZIDE [Concomitant]
     Active Substance: ENALAPRIL MALEATE\HYDROCHLOROTHIAZIDE
  6. QVAR REDIHALER [Concomitant]
     Active Substance: BECLOMETHASONE DIPROPIONATE

REACTIONS (1)
  - Death [Fatal]
